FAERS Safety Report 12071320 (Version 4)
Quarter: 2016Q2

REPORT INFORMATION
  Report Type: Report from Study
  Country: US (occurrence: US)
  Receive Date: 20160211
  Receipt Date: 20160503
  Transmission Date: 20160815
  Serious: Yes (Death, Other)
  Sender: FDA-Public Use
  Company Number: US-GILEAD-2016-0197178

PATIENT
  Age: 52 Year
  Sex: Male
  Weight: 90.7 kg

DRUGS (6)
  1. ZOLOFT [Concomitant]
     Active Substance: SERTRALINE HYDROCHLORIDE
     Indication: ANXIETY
  2. MUCINEX [Concomitant]
     Active Substance: GUAIFENESIN
     Indication: SINUS CONGESTION
     Dosage: 600 MG, UNK
     Route: 048
     Dates: start: 20151209
  3. REMERON [Concomitant]
     Active Substance: MIRTAZAPINE
     Indication: INSOMNIA
  4. LEDIPASVIR/SOFOSBUVIR [Suspect]
     Active Substance: LEDIPASVIR\SOFOSBUVIR
     Indication: HEPATITIS C
     Dosage: 1 DF, QD
     Route: 048
     Dates: start: 20160111, end: 201603
  5. ZOLOFT [Concomitant]
     Active Substance: SERTRALINE HYDROCHLORIDE
     Indication: DEPRESSION
     Dosage: 50 MG, UNK
     Route: 048
     Dates: start: 20120905
  6. REMERON [Concomitant]
     Active Substance: MIRTAZAPINE
     Indication: RESTLESS LEGS SYNDROME
     Dosage: 15 MG, UNK
     Route: 048
     Dates: start: 20151209

REACTIONS (7)
  - Photophobia [Recovered/Resolved]
  - Parosmia [Recovered/Resolved]
  - Vomiting [Recovered/Resolved]
  - Sudden death [Fatal]
  - Migraine [Recovering/Resolving]
  - Hyperacusis [Recovered/Resolved]
  - Cardiac arrest [Fatal]

NARRATIVE: CASE EVENT DATE: 20160116
